FAERS Safety Report 13612029 (Version 1)
Quarter: 2017Q2

REPORT INFORMATION
  Report Type: Spontaneous
  Country: US (occurrence: US)
  Receive Date: 20170605
  Receipt Date: 20170605
  Transmission Date: 20170830
  Serious: No
  Sender: FDA-Public Use
  Company Number: None

PATIENT
  Age: 31 Year
  Sex: Female
  Weight: 69 kg

DRUGS (1)
  1. OMALIZUMAB [Suspect]
     Active Substance: OMALIZUMAB
     Route: 058
     Dates: start: 20160318

REACTIONS (6)
  - Tachycardia [None]
  - Dyspnoea [None]
  - Anxiety [None]
  - Pruritus [None]
  - Rash [None]
  - Chronic spontaneous urticaria [None]

NARRATIVE: CASE EVENT DATE: 20160513
